FAERS Safety Report 10796953 (Version 2)
Quarter: 2015Q1

REPORT INFORMATION
  Report Type: Report from Study
  Country: US (occurrence: US)
  Receive Date: 20150216
  Receipt Date: 20150311
  Transmission Date: 20150721
  Serious: Yes (Hospitalization, Other)
  Sender: FDA-Public Use
  Company Number: US-BAYER-2014-099337

PATIENT
  Age: 78 Year
  Sex: Female

DRUGS (8)
  1. ADEMPAS [Suspect]
     Active Substance: RIOCIGUAT
     Indication: PULMONARY ARTERIAL HYPERTENSION
     Dosage: 1.5 MG, TID
     Route: 048
  2. OXYGEN. [Concomitant]
     Active Substance: OXYGEN
  3. ADEMPAS [Suspect]
     Active Substance: RIOCIGUAT
     Indication: PULMONARY ARTERIAL HYPERTENSION
     Dosage: 1 MG, TID
     Route: 048
     Dates: start: 20140409
  4. WARFARIN [Concomitant]
     Active Substance: WARFARIN
  5. ADEMPAS [Suspect]
     Active Substance: RIOCIGUAT
     Indication: PULMONARY ARTERIAL HYPERTENSION
     Dosage: 1.5 MG, TID
     Route: 048
  6. ADEMPAS [Suspect]
     Active Substance: RIOCIGUAT
     Indication: PULMONARY ARTERIAL HYPERTENSION
     Dosage: 1.5 MG, TID
     Route: 048
     Dates: start: 20140515
  7. TRACLEER [Concomitant]
     Active Substance: BOSENTAN\BOSENTAN MONOHYDRATE
  8. ASPIRIN. [Concomitant]
     Active Substance: ASPIRIN

REACTIONS (21)
  - Limb injury [None]
  - Blood calcium increased [None]
  - Oedema peripheral [None]
  - Gait disturbance [None]
  - Swelling [Unknown]
  - Thrombosis [None]
  - Weight increased [None]
  - Ear injury [None]
  - Blood pressure decreased [None]
  - Dizziness [None]
  - Increased tendency to bruise [None]
  - Renal function test abnormal [None]
  - Diarrhoea [Unknown]
  - Back injury [None]
  - Fall [Unknown]
  - Head injury [None]
  - Pain of skin [None]
  - Malaise [None]
  - Fall [None]
  - Contusion [None]
  - Pain in extremity [Unknown]
